FAERS Safety Report 9259136 (Version 1)
Quarter: 2013Q2

REPORT INFORMATION
  Report Type: Report from Study
  Country: GB (occurrence: GB)
  Receive Date: 20130426
  Receipt Date: 20130426
  Transmission Date: 20140414
  Serious: Yes (Hospitalization)
  Sender: FDA-Public Use
  Company Number: GB-ABBOTT-13P-167-1080013-00

PATIENT
  Age: 52 Year
  Sex: Female
  Weight: 81 kg

DRUGS (2)
  1. HUMIRA [Suspect]
     Indication: RHEUMATOID ARTHRITIS
     Route: 058
     Dates: start: 20060320, end: 20120615
  2. METHOTREXATE [Concomitant]
     Indication: PRODUCT USED FOR UNKNOWN INDICATION

REACTIONS (5)
  - Pancreatic cyst [Unknown]
  - Cellulitis [Unknown]
  - Skin ulcer [Unknown]
  - Dysplasia [Unknown]
  - Pancreatic mass [Unknown]
